FAERS Safety Report 10506756 (Version 3)
Quarter: 2015Q2

REPORT INFORMATION
  Report Type: Report from Study
  Country: US (occurrence: US)
  Receive Date: 20141009
  Receipt Date: 20150626
  Transmission Date: 20150821
  Serious: Yes (Hospitalization, Other)
  Sender: FDA-Public Use
  Company Number: US-UCBSA-2014013250

PATIENT
  Age: 71 Year
  Sex: Male
  Weight: 89.8 kg

DRUGS (24)
  1. CLOPIDOGREL BISULFATE. [Concomitant]
     Active Substance: CLOPIDOGREL BISULFATE
     Indication: UNEVALUABLE EVENT
     Dosage: 75 MG, ONCE DAILY (QD)
     Route: 048
     Dates: start: 2011
  2. LISINOPRIL. [Concomitant]
     Active Substance: LISINOPRIL
     Indication: HYPERTENSION
     Dosage: 10 MG, ONCE DAILY (QD)
     Route: 048
  3. GARLIC. [Concomitant]
     Active Substance: GARLIC
     Indication: SUPPLEMENTATION THERAPY
     Dosage: 1000 MG, 2X/DAY (BID)
     Dates: start: 2004
  4. VITAMIN B12 [Concomitant]
     Active Substance: CYANOCOBALAMIN
     Indication: SUPPLEMENTATION THERAPY
     Dosage: 2000 MG, ONCE DAILY (QD)
     Route: 048
     Dates: start: 2004
  5. CERTOLIZUMAB PEGOL RA [Suspect]
     Active Substance: CERTOLIZUMAB PEGOL
     Indication: RHEUMATOID ARTHRITIS
     Dosage: 200 MG, UNK
     Route: 058
     Dates: start: 20140102
  6. FOLIC ACID. [Concomitant]
     Active Substance: FOLIC ACID
     Indication: RHEUMATOID ARTHRITIS
     Dosage: 1 MG, ONCE DAILY (QD)
     Route: 048
     Dates: start: 2009
  7. FISH OIL [Concomitant]
     Active Substance: FISH OIL
     Indication: SUPPLEMENTATION THERAPY
     Dosage: BID
     Dates: start: 2004
  8. LECITHIN [Concomitant]
     Active Substance: LECITHIN
     Indication: SUPPLEMENTATION THERAPY
     Dosage: 1200 MG, ONCE DAILY (QD)
     Route: 048
     Dates: start: 2004
  9. AZOPT [Concomitant]
     Active Substance: BRINZOLAMIDE
     Indication: UNEVALUABLE EVENT
     Dosage: 10 ML, 2X/DAY (BID)
     Route: 047
     Dates: start: 2013
  10. LUMIGAN [Concomitant]
     Active Substance: BIMATOPROST
     Indication: UNEVALUABLE EVENT
     Dosage: 5 ML, ONCE DAILY (QD)
     Route: 047
     Dates: start: 2013
  11. ATORVASTATIN [Concomitant]
     Active Substance: ATORVASTATIN
     Indication: UNEVALUABLE EVENT
     Dosage: 20 MG, ONCE DAILY (QD)
     Route: 048
     Dates: start: 2004
  12. FUROSEMIDE. [Concomitant]
     Active Substance: FUROSEMIDE
     Indication: HYPERTENSION
     Dosage: 40 MG, ONCE DAILY (QD)
     Route: 048
  13. SIMVASTATIN. [Concomitant]
     Active Substance: SIMVASTATIN
     Indication: HYPERCHOLESTEROLAEMIA
     Dosage: 40 MG, ONCE DAILY (QD)
     Route: 048
     Dates: start: 2013
  14. KLOR-CON [Concomitant]
     Active Substance: POTASSIUM CHLORIDE
     Indication: HYPOKALAEMIA
     Dosage: 10 MEQ, ONCE DAILY (QD)
     Route: 048
  15. CENTRUM [Concomitant]
     Active Substance: VITAMINS
     Indication: UNEVALUABLE EVENT
     Dosage: 1 DF, ONCE DAILY (QD)
     Route: 048
     Dates: start: 201405
  16. AMLODIPINE BESYLATE. [Concomitant]
     Active Substance: AMLODIPINE BESYLATE
     Indication: HYPERTENSION
     Dosage: 10 MG, ONCE DAILY (QD)
     Route: 048
  17. NITROGLYCERIN. [Concomitant]
     Active Substance: NITROGLYCERIN
     Indication: UNEVALUABLE EVENT
     Dosage: 0.4 MG, ONCE DAILY (QD)
     Route: 060
     Dates: start: 2013
  18. LIPITOR [Concomitant]
     Active Substance: ATORVASTATIN CALCIUM
     Indication: HYPERCHOLESTEROLAEMIA
     Dosage: 20 MG, ONCE DAILY (QD)
     Route: 048
     Dates: start: 20140212
  19. TRAMADOL [Concomitant]
     Active Substance: TRAMADOL
     Indication: UNEVALUABLE EVENT
     Dosage: 50 MG, AS NEEDED (PRN)
     Route: 048
     Dates: start: 201401
  20. METHOTREXATE [Concomitant]
     Active Substance: METHOTREXATE
     Indication: RHEUMATOID ARTHRITIS
     Dosage: 2.5 MG, WEEKLY (QW)
     Route: 048
     Dates: start: 2009
  21. NITROSTAT [Concomitant]
     Active Substance: NITROGLYCERIN
     Indication: UNEVALUABLE EVENT
     Dosage: 0.4 MG, UNK
     Route: 048
  22. CARVEDILOL. [Concomitant]
     Active Substance: CARVEDILOL
     Indication: UNEVALUABLE EVENT
     Dosage: 6.25 MG, 2X/DAY (BID)
     Route: 048
     Dates: start: 201310
  23. METHYLPREDNISOLONE. [Concomitant]
     Active Substance: METHYLPREDNISOLONE
     Indication: RHEUMATOID ARTHRITIS
     Dosage: 2 MG, ONCE DAILY (QD)
     Route: 048
     Dates: start: 2009
  24. ISOSORBIDE MONONITRATE. [Concomitant]
     Active Substance: ISOSORBIDE MONONITRATE
     Indication: UNEVALUABLE EVENT
     Dosage: 120 MG, ONCE DAILY (QD)
     Route: 048
     Dates: start: 2013

REACTIONS (2)
  - Atrial fibrillation [Not Recovered/Not Resolved]
  - Pyrexia [Not Recovered/Not Resolved]

NARRATIVE: CASE EVENT DATE: 20140922
